FAERS Safety Report 24090394 (Version 1)
Quarter: 2024Q3

REPORT INFORMATION
  Report Type: Spontaneous
  Country: CA (occurrence: CA)
  Receive Date: 20240715
  Receipt Date: 20240715
  Transmission Date: 20241017
  Serious: Yes (Life-Threatening, Hospitalization, Other)
  Sender: PFIZER
  Company Number: CA-PFIZER INC-202400209834

PATIENT
  Age: 10 Year
  Sex: Female

DRUGS (17)
  1. VINCRISTINE SULFATE [Suspect]
     Active Substance: VINCRISTINE SULFATE
     Indication: Lymphangioma
     Dosage: 0.05 MG/KG, WEEKLY
     Route: 042
  2. VINCRISTINE SULFATE [Suspect]
     Active Substance: VINCRISTINE SULFATE
     Dosage: 0.05 MG/KG (EVERY 2 OR 3 WEEKS)
     Route: 042
  3. SIROLIMUS [Concomitant]
     Active Substance: SIROLIMUS
     Indication: Lymphangioma
     Dosage: 1.6 MG/M2, 2X/DAY (APPROXIMATELY 8 YEARS)
     Route: 048
  4. SIROLIMUS [Concomitant]
     Active Substance: SIROLIMUS
     Dosage: 0.8 MG/M2, 2X/DAY
     Route: 048
  5. SIROLIMUS [Concomitant]
     Active Substance: SIROLIMUS
     Dosage: DOSE TITRATION BETWEEN 1.5 AND 2 MG/M2
     Route: 048
  6. SIROLIMUS [Concomitant]
     Active Substance: SIROLIMUS
     Dosage: HALVED
     Route: 048
  7. PROPRANOLOL [Concomitant]
     Active Substance: PROPRANOLOL HYDROCHLORIDE
     Dosage: 1 MG/KG, DAILY
     Route: 048
  8. INTERFERON [Concomitant]
     Active Substance: INTERFERON
     Indication: Lymphangioma
     Dosage: UNK
     Route: 042
  9. OCTREOTIDE [Concomitant]
     Active Substance: OCTREOTIDE\OCTREOTIDE ACETATE
     Indication: Lymphangioma
     Dosage: THREE INJECTIONS
  10. TRAMETINIB [Concomitant]
     Active Substance: TRAMETINIB
     Indication: Lymphangioma
     Dosage: 0.025 MG/KG, DAILY
     Route: 048
  11. TRAMETINIB [Concomitant]
     Active Substance: TRAMETINIB
     Dosage: 0.012 MG/KG, DAILY
     Route: 048
  12. ALCOHOL [Concomitant]
     Active Substance: ALCOHOL
     Dosage: ONE
  13. SOTRADECOL [Concomitant]
     Active Substance: SODIUM TETRADECYL SULFATE
     Indication: Sclerotherapy
     Dosage: TWO SESSIONS, FOAM/MIXTURE OF 5 CM 3
  14. LIPIODOL [Concomitant]
     Active Substance: ETHIODIZED OIL
     Indication: Sclerotherapy
     Dosage: FOAM/MIXTURE OF 2 CM3, TWO SESSIONS
  15. BLEOMYCIN [Concomitant]
     Active Substance: BLEOMYCIN SULFATE
     Indication: Lymphangioma
     Dosage: 10 SESSIONS
  16. DOXYCYCLINE [Concomitant]
     Active Substance: DOXYCYCLINE\DOXYCYCLINE HYCLATE
     Dosage: 1 SESSIONS
  17. PREDNISONE [Concomitant]
     Active Substance: PREDNISONE
     Dosage: 1 MG/KG, DAILY

REACTIONS (1)
  - Neuropathy peripheral [Unknown]
